FAERS Safety Report 21919644 (Version 3)
Quarter: 2023Q2

REPORT INFORMATION
  Report Type: Report from Study
  Country: CA (occurrence: CA)
  Receive Date: 20230127
  Receipt Date: 20230623
  Transmission Date: 20230722
  Serious: Yes (Hospitalization)
  Sender: FDA-Public Use
  Company Number: CA-002147023-NVSC2022CA258450

PATIENT
  Age: 43 Year
  Sex: Female

DRUGS (15)
  1. HYDROCORTISONE [Suspect]
     Active Substance: HYDROCORTISONE
     Indication: Product used for unknown indication
     Dosage: 1 DOSAGE FORM, PRN
     Route: 065
  2. INDOMETHACIN [Suspect]
     Active Substance: INDOMETHACIN
     Indication: Product used for unknown indication
     Dosage: 1 DOSAGE FORM
     Route: 065
  3. MONTELUKAST [Suspect]
     Active Substance: MONTELUKAST SODIUM
     Indication: Asthma
     Dosage: 1 DOSAGE FORM, QD
     Route: 048
     Dates: start: 202206
  4. MOMETASONE [Suspect]
     Active Substance: MOMETASONE
     Indication: Asthma
     Dosage: 1 DOSAGE FORM, PRN
     Route: 045
     Dates: start: 202206
  5. XOLAIR [Suspect]
     Active Substance: OMALIZUMAB
     Indication: Asthma
     Dosage: 225 MG, BIW
     Route: 058
     Dates: start: 20230613
  6. SYMBICORT [Concomitant]
     Active Substance: BUDESONIDE\FORMOTEROL FUMARATE DIHYDRATE
     Indication: Asthma
     Dosage: 2 DOSAGE FORM, BID
     Dates: start: 202206
  7. VENTOLIN [Concomitant]
     Active Substance: ALBUTEROL SULFATE
     Indication: Asthma
     Dosage: 1 DOSAGE FORM, PRN
  8. ZENHALE [Concomitant]
     Active Substance: FORMOTEROL FUMARATE\MOMETASONE FUROATE
     Indication: Asthma
     Dosage: 2 DOSAGE FORM, BID
     Dates: start: 202206
  9. ZENHALE [Concomitant]
     Active Substance: FORMOTEROL FUMARATE\MOMETASONE FUROATE
     Dosage: UNK (EVERY THIRD DAY OF THE WEEK)
     Route: 065
  10. SPIRIVA [Concomitant]
     Active Substance: TIOTROPIUM BROMIDE MONOHYDRATE
     Indication: Asthma
     Dosage: 1 DOSAGE FORM, QD
     Dates: start: 202206
  11. ATROVENT [Concomitant]
     Active Substance: IPRATROPIUM BROMIDE
     Indication: Asthma
     Dosage: 1 DOSAGE FORM, OTHER
  12. BENADRYL [Concomitant]
     Active Substance: DIPHENHYDRAMINE HYDROCHLORIDE
     Indication: Asthma
     Dosage: 1 DOSAGE FORM, PRN
     Route: 048
     Dates: start: 2020
  13. REACTINE [Concomitant]
     Indication: Asthma
     Dosage: 1 DOSAGE FORM
     Route: 048
  14. NEXIUM [Concomitant]
     Active Substance: ESOMEPRAZOLE MAGNESIUM
     Indication: Asthma
     Dosage: 1 DOSAGE FORM
     Route: 048
  15. PREDNISONE [Concomitant]
     Active Substance: PREDNISONE
     Indication: Product used for unknown indication
     Dosage: UNK (FOR 20 DAYS)
     Route: 065
     Dates: start: 20220604

REACTIONS (8)
  - Middle insomnia [Unknown]
  - Asthma [Unknown]
  - Hypersensitivity [Unknown]
  - Chronic obstructive pulmonary disease [Unknown]
  - Rhinitis allergic [Unknown]
  - Weight decreased [Unknown]
  - Swelling face [Unknown]
  - Urticaria [Unknown]
